FAERS Safety Report 8829508 (Version 1)
Quarter: 2012Q4

REPORT INFORMATION
  Report Type: 
  Country: US (occurrence: US)
  Receive Date: 20121008
  Receipt Date: 20121008
  Transmission Date: 20130627
  Serious: Yes (Death)
  Sender: FDA-Public Use
  Company Number: US-ROCHE-1134501

PATIENT
  Sex: Female

DRUGS (27)
  1. RITUXAN [Suspect]
     Indication: NON-HODGKIN^S LYMPHOMA
     Dosage: four cycles
     Route: 065
     Dates: start: 19981019
  2. RITUXAN [Suspect]
     Route: 065
     Dates: start: 19981111
  3. RITUXAN [Suspect]
     Dosage: eight doses
     Route: 065
     Dates: start: 199904
  4. CYTOXAN [Concomitant]
     Route: 065
     Dates: start: 19971125
  5. CYTOXAN [Concomitant]
     Route: 065
     Dates: start: 199801
  6. CYTOXAN [Concomitant]
     Route: 065
     Dates: start: 19981019
  7. CYTOXAN [Concomitant]
     Route: 065
     Dates: start: 19980318
  8. CYTOXAN [Concomitant]
     Route: 065
     Dates: start: 19990423
  9. CYTOXAN [Concomitant]
     Route: 065
     Dates: start: 19990429
  10. ADRIAMYCIN [Concomitant]
     Route: 065
     Dates: start: 19971125
  11. ADRIAMYCIN [Concomitant]
     Route: 065
     Dates: start: 199801
  12. ADRIAMYCIN [Concomitant]
     Route: 065
     Dates: start: 19981019
  13. ADRIAMYCIN [Concomitant]
     Route: 065
     Dates: start: 19980318
  14. ADRIAMYCIN [Concomitant]
     Route: 065
     Dates: start: 19990423
  15. ADRIAMYCIN [Concomitant]
     Route: 065
     Dates: start: 19990429
  16. VINCRISTINE [Concomitant]
     Route: 065
     Dates: start: 19971125
  17. VINCRISTINE [Concomitant]
     Route: 065
     Dates: start: 199801
  18. VINCRISTINE [Concomitant]
     Route: 065
     Dates: start: 19981019
  19. VINCRISTINE [Concomitant]
     Route: 065
     Dates: start: 19980318
  20. VINCRISTINE [Concomitant]
     Route: 065
     Dates: start: 19990423
  21. VINCRISTINE [Concomitant]
     Route: 065
     Dates: start: 19990429
  22. PREDNISONE [Concomitant]
     Route: 065
     Dates: start: 19971125
  23. PREDNISONE [Concomitant]
     Route: 065
     Dates: start: 199801
  24. PREDNISONE [Concomitant]
     Route: 065
     Dates: start: 19981019
  25. PREDNISONE [Concomitant]
     Route: 065
     Dates: start: 19980318
  26. PREDNISONE [Concomitant]
     Route: 065
     Dates: start: 19990423
  27. PREDNISONE [Concomitant]
     Route: 065
     Dates: start: 19990429

REACTIONS (3)
  - Myocardial infarction [Fatal]
  - Disease progression [Unknown]
  - Local swelling [Unknown]
